FAERS Safety Report 9925773 (Version 2)
Quarter: 2014Q1

REPORT INFORMATION
  Report Type: Spontaneous
  Country: IT (occurrence: IT)
  Receive Date: 20140226
  Receipt Date: 20140226
  Transmission Date: 20141002
  Serious: Yes (Other)
  Sender: FDA-Public Use
  Company Number: IT-TEVA-460110ISR

PATIENT
  Age: 60 Year
  Sex: Female

DRUGS (3)
  1. OLANZAPINA [Suspect]
     Indication: AFFECTIVE DISORDER
     Dosage: 5 MILLIGRAM DAILY;
     Route: 048
  2. OLANZAPINA [Suspect]
     Dosage: 7.5 MILLIGRAM DAILY; DUE TO THE AE^S, DOSAGE WAS INCREASED TO 7.5 MG
     Route: 048
  3. DALMADORM [Concomitant]
     Dosage: 30 MILLIGRAM DAILY;

REACTIONS (4)
  - Product substitution issue [Unknown]
  - Drug ineffective [Unknown]
  - Anxiety [Unknown]
  - Emotional distress [Unknown]
